FAERS Safety Report 7479735-2 (Version None)
Quarter: 2011Q2

REPORT INFORMATION
  Report Type: 
  Country: None (occurrence: None)
  Receive Date: 20110513
  Receipt Date: 20110511
  Transmission Date: 20111010
  Serious: Yes (Hospitalization)
  Sender: FDA-Public Use
  Company Number: IT-SANOFI-AVENTIS-2011SA027023

PATIENT
  Age: 54 Year
  Sex: Female

DRUGS (3)
  1. EUTIROX [Concomitant]
     Route: 048
     Dates: start: 20080101, end: 20081006
  2. PLAQUENIL [Suspect]
     Indication: PULMONARY SARCOIDOSIS
     Route: 048
     Dates: start: 20080915, end: 20081006
  3. PREDNISONE [Concomitant]
     Route: 048
     Dates: start: 20080101, end: 20081006

REACTIONS (3)
  - HYPERPYREXIA [None]
  - OFF LABEL USE [None]
  - PUSTULAR PSORIASIS [None]
